FAERS Safety Report 5379820-5 (Version None)
Quarter: 2007Q2

REPORT INFORMATION
  Report Type: 
  Country: None (occurrence: None)
  Receive Date: 20070530
  Receipt Date: 20070307
  Transmission Date: 20071010
  Serious: No
  Sender: FDA-Public Use
  Company Number: 2007PV031263

PATIENT
  Age: 41 Year
  Sex: Male

DRUGS (1)
  1. BYETTA [Suspect]
     Indication: DIABETES MELLITUS
     Dosage: BID;SC
     Route: 058
     Dates: start: 20070306

REACTIONS (4)
  - DIZZINESS [None]
  - HEART RATE INCREASED [None]
  - PARAESTHESIA [None]
  - TREMOR [None]
